FAERS Safety Report 20483998 (Version 1)
Quarter: 2022Q1

REPORT INFORMATION
  Report Type: Spontaneous
  Country: US (occurrence: None)
  Receive Date: 20220216
  Receipt Date: 20220216
  Transmission Date: 20220423
  Serious: Yes (Hospitalization)
  Sender: FDA-Public Use
  Company Number: None

PATIENT
  Age: 65 Year
  Sex: Male
  Weight: 86.2 kg

DRUGS (14)
  1. CASIRIVIMAB [Suspect]
     Active Substance: CASIRIVIMAB
     Indication: COVID-19
     Dosage: OTHER FREQUENCY : ONCE;?
     Route: 042
     Dates: start: 20210604, end: 20210604
  2. IMDEVIMAB [Suspect]
     Active Substance: IMDEVIMAB
     Indication: COVID-19
     Dosage: OTHER FREQUENCY : ONCE;?
     Route: 042
     Dates: start: 20210604, end: 20210604
  3. DOXYCYCLINE [Concomitant]
     Active Substance: DOXYCYCLINE
     Dates: start: 20210605, end: 20210605
  4. AZITHROMYCIN [Concomitant]
     Active Substance: AZITHROMYCIN
     Dates: start: 20210606, end: 20210611
  5. CEFTRIAXONE [Concomitant]
     Active Substance: CEFTRIAXONE
     Dates: start: 20210606, end: 20210610
  6. REMDESIVIR [Concomitant]
     Active Substance: REMDESIVIR
     Dates: start: 20210606, end: 20210610
  7. DEXAMETHASONE [Concomitant]
     Active Substance: DEXAMETHASONE
     Dates: start: 20210606, end: 20210611
  8. ENOXAPARIN [Concomitant]
     Active Substance: ENOXAPARIN
     Dates: start: 20210606, end: 20210611
  9. ASCORBIC ACID [Concomitant]
     Active Substance: ASCORBIC ACID
     Dates: start: 20210606, end: 20210611
  10. CHOLECALCIFEROL [Concomitant]
     Active Substance: CHOLECALCIFEROL
     Dates: start: 20210606, end: 20210611
  11. ZINC SULFATE [Concomitant]
     Active Substance: ZINC SULFATE
     Dates: start: 20210606, end: 20210611
  12. FAMOTIDINE [Concomitant]
     Active Substance: FAMOTIDINE
     Dates: start: 20210606, end: 20210611
  13. COMBIVENT RESPIMAT [Concomitant]
     Active Substance: ALBUTEROL SULFATE\IPRATROPIUM BROMIDE
     Dates: start: 20210606, end: 20210611
  14. CODEINE-GUAIFENESIN [Concomitant]
     Active Substance: CODEINE PHOSPHATE\GUAIFENESIN
     Dates: start: 20210607, end: 20210611

REACTIONS (2)
  - COVID-19 pneumonia [None]
  - Infusion related reaction [None]

NARRATIVE: CASE EVENT DATE: 20210605
